FAERS Safety Report 7518150-X (Version None)
Quarter: 2011Q2

REPORT INFORMATION
  Report Type: 
  Country: None (occurrence: None)
  Receive Date: 20110531
  Receipt Date: 20110531
  Transmission Date: 20111010
  Serious: Yes (Hospitalization)
  Sender: FDA-Public Use
  Company Number: None

PATIENT
  Sex: Male
  Weight: 93.36 kg

DRUGS (2)
  1. TAXOL [Suspect]
     Dosage: 102 MG
     Dates: end: 20110511
  2. CISPLATIN [Suspect]
     Dosage: 51 MG
     Dates: end: 20110511

REACTIONS (4)
  - PAIN [None]
  - STAPHYLOCOCCAL BACTERAEMIA [None]
  - BLOOD CREATININE INCREASED [None]
  - PYREXIA [None]
